FAERS Safety Report 14485019 (Version 2)
Quarter: 2018Q1

REPORT INFORMATION
  Report Type: Spontaneous
  Country: US (occurrence: US)
  Receive Date: 20180205
  Receipt Date: 20180326
  Transmission Date: 20180509
  Serious: No
  Sender: FDA-Public Use
  Company Number: US-PFIZER INC-2018045989

PATIENT
  Age: 26 Year
  Sex: Female
  Weight: 99.79 kg

DRUGS (1)
  1. ADVIL MENSTRUAL PAIN [Suspect]
     Active Substance: IBUPROFEN SODIUM
     Indication: DYSMENORRHOEA
     Dosage: ONE EVERY 4 HOURS
     Route: 048
     Dates: start: 201801, end: 20180129

REACTIONS (1)
  - Drug ineffective [Recovered/Resolved]

NARRATIVE: CASE EVENT DATE: 20180122
